FAERS Safety Report 5628138-1 (Version None)
Quarter: 2008Q1

REPORT INFORMATION
  Report Type: 
  Country: None (occurrence: None)
  Receive Date: 20080215
  Receipt Date: 20080207
  Transmission Date: 20080703
  Serious: Yes (Hospitalization)
  Sender: FDA-Public Use
  Company Number: ES-ELI_LILLY_AND_COMPANY-ES200802001638

PATIENT
  Age: 74 Year
  Sex: Female

DRUGS (4)
  1. FORTEO [Suspect]
     Indication: OSTEOPOROSIS
     Dosage: 20 UG, UNKNOWN
     Route: 058
     Dates: start: 20070101
  2. CAOSINA [Concomitant]
     Dosage: UNK, UNKNOWN
     Route: 065
  3. RELIF [Concomitant]
     Dosage: UNK, UNKNOWN
     Route: 065
  4. CORTISONE [Concomitant]
     Indication: ASTHMA
     Dosage: UNK, UNKNOWN
     Route: 065

REACTIONS (6)
  - ASTHMA [None]
  - FALL [None]
  - FATIGUE [None]
  - FEMUR FRACTURE [None]
  - GAIT DISTURBANCE [None]
  - PNEUMONIA [None]
